FAERS Safety Report 17256337 (Version 2)
Quarter: 2020Q2

REPORT INFORMATION
  Report Type: Spontaneous
  Country: FR (occurrence: FR)
  Receive Date: 20200110
  Receipt Date: 20200626
  Transmission Date: 20200713
  Serious: Yes (Hospitalization, Disabling)
  Sender: FDA-Public Use
  Company Number: FR-TEVA-2020-FR-1164568

PATIENT
  Age: 69 Year
  Sex: Female
  Weight: 105 kg

DRUGS (5)
  1. EZETROL 10 MG, COMPRIM? [Suspect]
     Active Substance: EZETIMIBE
     Indication: HYPERCHOLESTEROLAEMIA
     Dosage: 1 DOSAGE FORM
     Route: 048
  2. OROCAL D3, COMPRIM? ? SUCER [Suspect]
     Active Substance: CALCIUM CARBONATE\CHOLECALCIFEROL
     Indication: CALCIUM DEFICIENCY
     Dosage: 1 DOSAGE FORM
     Route: 048
  3. VOTRIENT [Suspect]
     Active Substance: PAZOPANIB HYDROCHLORIDE
     Indication: RENAL NEOPLASM
     Dosage: 2 DOSAGE FORM
     Route: 048
     Dates: start: 20190618, end: 20191208
  4. XGEVA [Suspect]
     Active Substance: DENOSUMAB
     Indication: METASTASES TO BONE
     Dosage: 1 DOSAGE FORM
     Route: 058
  5. NEBIVOLOL. [Suspect]
     Active Substance: NEBIVOLOL
     Indication: HYPERTENSION
     Dosage: 5 MILLIGRAM
     Route: 048

REACTIONS (1)
  - Sensorimotor disorder [Recovered/Resolved with Sequelae]

NARRATIVE: CASE EVENT DATE: 20191113
